FAERS Safety Report 8303859 (Version 3)
Quarter: 2014Q1

REPORT INFORMATION
  Report Type: Spontaneous
  Country: US (occurrence: US)
  Receive Date: 20111221
  Receipt Date: 20140123
  Transmission Date: 20141002
  Serious: Yes (Hospitalization, Other)
  Sender: FDA-Public Use
  Company Number: US-BAYER-2011-119924

PATIENT
  Age: 19 Year
  Sex: Female
  Weight: 62.59 kg

DRUGS (1)
  1. OCELLA [Suspect]
     Dosage: UNK
     Dates: start: 2006, end: 2009

REACTIONS (3)
  - Gallbladder disorder [None]
  - Injury [None]
  - Cholecystitis [None]
